FAERS Safety Report 13664102 (Version 1)
Quarter: 2017Q2

REPORT INFORMATION
  Report Type: Spontaneous
  Country: US (occurrence: US)
  Receive Date: 20170619
  Receipt Date: 20170619
  Transmission Date: 20170830
  Serious: Yes (Hospitalization, Other)
  Sender: FDA-Public Use
  Company Number: US-RECKITT BENCKISER HEALTHCARE INT LIMITED-RB-88286-2017

PATIENT
  Age: 16 Year
  Sex: Male

DRUGS (3)
  1. MARIJUANA [Suspect]
     Active Substance: CANNABIS SATIVA SUBSP. INDICA TOP
     Indication: DRUG USE DISORDER
     Dosage: UNK
     Route: 065
  2. UNSPECIFIED DEXTROMETHORPHAN HYDROBROMIDE [Suspect]
     Active Substance: DEXTROMETHORPHAN HYDROBROMIDE
     Indication: DRUG USE DISORDER
     Dosage: 300 MG, SINGLE
     Route: 048
  3. UNSPECIFIED DEXTROMETHORPHAN HYDROBROMIDE [Suspect]
     Active Substance: DEXTROMETHORPHAN HYDROBROMIDE
     Dosage: 600 MG, SINGLE (FOR LAST WEEK BEFORE HOSPITALIZATION)
     Route: 048

REACTIONS (19)
  - Mania [Recovered/Resolved]
  - Delusion [Recovered/Resolved]
  - Insomnia [Recovered/Resolved]
  - Distractibility [Recovered/Resolved]
  - Euphoric mood [Recovered/Resolved]
  - Tearfulness [Recovered/Resolved]
  - Psychomotor hyperactivity [Recovered/Resolved]
  - Affect lability [Recovered/Resolved]
  - Drug use disorder [Recovered/Resolved]
  - Impulsive behaviour [Recovered/Resolved]
  - Mood swings [Recovered/Resolved]
  - Abnormal behaviour [Recovered/Resolved]
  - Depression suicidal [Unknown]
  - Pressure of speech [Recovered/Resolved]
  - Flight of ideas [Recovered/Resolved]
  - Energy increased [Recovered/Resolved]
  - Bipolar disorder [Unknown]
  - Intentional overdose [Unknown]
  - Grandiosity [Recovered/Resolved]
